FAERS Safety Report 7825623-9 (Version None)
Quarter: 2011Q4

REPORT INFORMATION
  Report Type: 
  Country: None (occurrence: None)
  Receive Date: 20111019
  Receipt Date: 20111007
  Transmission Date: 20120403
  Serious: Yes (Other)
  Sender: FDA-Public Use
  Company Number: PHHY2011US46000

PATIENT
  Sex: Female
  Weight: 84 kg

DRUGS (10)
  1. MYCOPHENOLATE MOFETIL (CELLCEPT) [Suspect]
     Indication: RENAL TRANSPLANT
  2. METHYLPREDNISOLONE [Suspect]
     Indication: RENAL TRANSPLANT
     Dosage: 4 MG, DAILY
  3. LABETALOL HCL [Concomitant]
  4. BACTRIM [Concomitant]
     Dosage: UNK UKN, UNK
     Route: 048
  5. MYFORTIC [Suspect]
     Indication: RENAL TRANSPLANT
     Dosage: 120 MG, BID
     Route: 048
     Dates: start: 20091001
  6. PROGRAF [Concomitant]
     Dosage: 4 MG, BID
     Route: 048
  7. MEDROL [Concomitant]
     Dosage: 2 MG, UNK
     Route: 048
  8. NIFEDIPINE [Concomitant]
  9. ASPIRIN [Concomitant]
  10. MULTI-VITAMINS [Concomitant]

REACTIONS (7)
  - MOUTH HAEMORRHAGE [None]
  - MOOD SWINGS [None]
  - FEELING ABNORMAL [None]
  - WEIGHT INCREASED [None]
  - URINARY TRACT INFECTION [None]
  - FATIGUE [None]
  - ASTHENIA [None]
